FAERS Safety Report 4529873-9 (Version None)
Quarter: 2004Q4

REPORT INFORMATION
  Report Type: 
  Country: None (occurrence: None)
  Receive Date: 20041214
  Receipt Date: 20041130
  Transmission Date: 20050328
  Serious: No
  Sender: FDA-Public Use
  Company Number: 2004-BP-06434BP

PATIENT
  Age: 70 Year
  Sex: Female
  Weight: 81.2 kg

DRUGS (10)
  1. AGGRENOX [Suspect]
     Indication: CEREBROVASCULAR ACCIDENT PROPHYLAXIS
     Dosage: SEE TEXT (SEE TEXT, 25 MG/200 MG (ONE CAPSULE BID)), PO
     Route: 048
     Dates: start: 20040726, end: 20040728
  2. ATENOLOL [Concomitant]
  3. GLUCOPHAGE [Concomitant]
  4. LISINOPRIL [Concomitant]
  5. METFORMIN HCL [Concomitant]
  6. AMARYL [Concomitant]
  7. ACETYLSALICYLIC ACID SRT [Concomitant]
  8. LIPITOR [Concomitant]
  9. LANTUS [Concomitant]
  10. VITAMIN CAP [Concomitant]

REACTIONS (14)
  - ABDOMINAL PAIN UPPER [None]
  - ATRIAL FLUTTER [None]
  - BREAST PAIN [None]
  - CAROTID ARTERY STENOSIS [None]
  - DIARRHOEA [None]
  - DIZZINESS [None]
  - FALL [None]
  - FEELING ABNORMAL [None]
  - HEADACHE [None]
  - HEART RATE IRREGULAR [None]
  - INSOMNIA [None]
  - JOINT INJURY [None]
  - NAUSEA [None]
  - PAIN [None]
